FAERS Safety Report 5562366-9 (Version None)
Quarter: 2007Q4

REPORT INFORMATION
  Report Type: 
  Country: None (occurrence: None)
  Receive Date: 20071215
  Receipt Date: 20070830
  Transmission Date: 20080405
  Serious: No
  Sender: FDA-Public Use
  Company Number: US-AMGEN-KDL241185

PATIENT
  Sex: Female

DRUGS (13)
  1. EPOGEN [Suspect]
     Indication: RENAL FAILURE CHRONIC
     Route: 042
     Dates: start: 20050407
  2. ARANESP [Suspect]
  3. ALLOPURINOL [Concomitant]
  4. COLCHICINE [Concomitant]
  5. ATACAND [Concomitant]
  6. LASIX [Concomitant]
  7. LOPID [Concomitant]
  8. TOPROL-XL [Concomitant]
  9. SENSIPAR [Concomitant]
  10. PROTONIX [Concomitant]
  11. RENAGEL [Concomitant]
  12. VITAMIN CAP [Concomitant]
  13. POTASSIUM CHLORIDE [Concomitant]

REACTIONS (1)
  - THERAPEUTIC RESPONSE DECREASED [None]
